FAERS Safety Report 11313474 (Version 1)
Quarter: 2015Q3

REPORT INFORMATION
  Report Type: Spontaneous
  Country: US (occurrence: US)
  Receive Date: 20150727
  Receipt Date: 20150727
  Transmission Date: 20151125
  Serious: Yes (Death, Hospitalization, Other)
  Sender: FDA-Public Use
  Company Number: US-APOTEX-2014AP004470

PATIENT

DRUGS (3)
  1. CITALOPRAM [Suspect]
     Active Substance: CITALOPRAM HYDROBROMIDE
     Indication: PRODUCT USED FOR UNKNOWN INDICATION
     Route: 065
  2. CITALOPRAM [Suspect]
     Active Substance: CITALOPRAM HYDROBROMIDE
     Route: 048
  3. CITALOPRAM [Suspect]
     Active Substance: CITALOPRAM HYDROBROMIDE
     Route: 065

REACTIONS (10)
  - Retching [Fatal]
  - Renal injury [Fatal]
  - Intentional overdose [Fatal]
  - Cardiac arrest [Fatal]
  - Cough [Fatal]
  - Seizure [Fatal]
  - Serotonin syndrome [Fatal]
  - Torsade de pointes [Fatal]
  - Liver injury [Fatal]
  - Pyrexia [Fatal]
